FAERS Safety Report 25586450 (Version 1)
Quarter: 2025Q3

REPORT INFORMATION
  Report Type: Spontaneous
  Country: US (occurrence: None)
  Receive Date: 20250719
  Receipt Date: 20250719
  Transmission Date: 20251020
  Serious: Yes (Hospitalization, Disabling)
  Sender: FDA-CTU
  Company Number: None

PATIENT
  Age: 64 Year
  Sex: Male
  Weight: 94.5 kg

DRUGS (1)
  1. ABILIFY [Suspect]
     Active Substance: ARIPIPRAZOLE
     Indication: Bipolar disorder
     Dates: start: 20230701, end: 20240104

REACTIONS (9)
  - Mania [None]
  - Insomnia [None]
  - Abnormal behaviour [None]
  - Tobacco user [None]
  - Alcohol use [None]
  - Depression [None]
  - Fatigue [None]
  - Blood pressure increased [None]
  - Withdrawal syndrome [None]
